FAERS Safety Report 9467593 (Version 1)
Quarter: 2013Q3

REPORT INFORMATION
  Report Type: Spontaneous
  Country: JP (occurrence: JP)
  Receive Date: 20130821
  Receipt Date: 20130821
  Transmission Date: 20140515
  Serious: Yes (Hospitalization)
  Sender: FDA-Public Use
  Company Number: JP-EISAI INC-E7389-04132-SPO-JP

PATIENT
  Age: 48 Year
  Sex: Female

DRUGS (2)
  1. HALAVEN [Suspect]
     Indication: BREAST CANCER RECURRENT
     Route: 041
     Dates: start: 20120204
  2. TRASTUZUMAB [Concomitant]
     Indication: BREAST CANCER RECURRENT
     Route: 042
     Dates: start: 20120204

REACTIONS (1)
  - Interstitial lung disease [Recovered/Resolved]
